FAERS Safety Report 19361342 (Version 1)
Quarter: 2021Q2

REPORT INFORMATION
  Report Type: Report from Study
  Country: HU (occurrence: HU)
  Receive Date: 20210601
  Receipt Date: 20210601
  Transmission Date: 20210717
  Serious: Yes (Other)
  Sender: FDA-Public Use
  Company Number: NVSC2021HU054509

PATIENT

DRUGS (1)
  1. KISQALI [Suspect]
     Active Substance: RIBOCICLIB
     Indication: PRODUCT USED FOR UNKNOWN INDICATION
     Dosage: UNK, 1X2
     Route: 065

REACTIONS (4)
  - Neutrophil count decreased [Unknown]
  - Breast cancer [Unknown]
  - White blood cell count decreased [Unknown]
  - Haemoglobin decreased [Unknown]
